FAERS Safety Report 5927456-7 (Version None)
Quarter: 2008Q4

REPORT INFORMATION
  Report Type: 
  Country: None (occurrence: None)
  Receive Date: 20081022
  Receipt Date: 20081022
  Transmission Date: 20090506
  Serious: Yes (Other)
  Sender: FDA-Public Use
  Company Number: None

PATIENT
  Sex: Female
  Weight: 86.1834 kg

DRUGS (1)
  1. LIPITOR [Suspect]
     Indication: BLOOD CHOLESTEROL INCREASED
     Dosage: 20 MG DAILY
     Dates: end: 20080901

REACTIONS (6)
  - ANAL PRURITUS [None]
  - ANORECTAL DISORDER [None]
  - ERYTHEMA [None]
  - FLATULENCE [None]
  - PROCTALGIA [None]
  - VULVOVAGINAL MYCOTIC INFECTION [None]
